FAERS Safety Report 21048338 (Version 1)
Quarter: 2022Q3

REPORT INFORMATION
  Report Type: Spontaneous
  Country: GB (occurrence: GB)
  Receive Date: 20220706
  Receipt Date: 20220706
  Transmission Date: 20221026
  Serious: Yes (Death)
  Sender: FDA-Public Use
  Company Number: GB-MHRA-MED-202206301326159900-DMSNL

PATIENT
  Age: 70 Year
  Sex: Male
  Weight: 72 kg

DRUGS (1)
  1. ATORVASTATIN [Suspect]
     Active Substance: ATORVASTATIN
     Indication: Cerebrovascular accident
     Dosage: 80 MILLIGRAM, QD, 80MG OD
     Route: 065

REACTIONS (4)
  - Acute kidney injury [Fatal]
  - Hypertension [Fatal]
  - Myocardial ischaemia [Fatal]
  - Rhabdomyolysis [Fatal]
